FAERS Safety Report 10149119 (Version 2)
Quarter: 2014Q2

REPORT INFORMATION
  Report Type: Spontaneous
  Country: US (occurrence: US)
  Receive Date: 20140502
  Receipt Date: 20140502
  Transmission Date: 20141212
  Serious: Yes (Hospitalization)
  Sender: FDA-Public Use
  Company Number: US-UCBSA-116824

PATIENT
  Age: 81 Year
  Sex: Female
  Weight: 78.9 kg

DRUGS (15)
  1. VIMPAT [Suspect]
     Indication: CONVULSION
     Route: 048
  2. RANEXA [Concomitant]
  3. DIOVAN [Concomitant]
     Indication: BLOOD PRESSURE
  4. THEOPHYLLINE ER [Concomitant]
  5. METOPROLOL SUE ER [Concomitant]
  6. FOLIC ACID [Concomitant]
     Indication: VITAMIN SUPPLEMENTATION
  7. PLAVIX [Concomitant]
     Indication: CEREBROVASCULAR ACCIDENT
  8. SINGULAIR [Concomitant]
  9. ALPRAZOLAM [Concomitant]
     Indication: ANXIETY
     Dosage: 0.25
  10. BABY ASA [Concomitant]
     Indication: CEREBROVASCULAR ACCIDENT
  11. METOCLOPRAMIDE [Concomitant]
  12. TOPROL XL [Concomitant]
     Indication: BLOOD PRESSURE
  13. AMLODIPINE [Concomitant]
     Indication: BLOOD PRESSURE
     Dosage: PRN
  14. ALBUTEROL NEB [Concomitant]
     Dosage: PRN, TWICE IN A DAY
  15. SIMICORT [Concomitant]
     Dosage: RESCUE INHALER, PRN

REACTIONS (4)
  - Fall [Recovering/Resolving]
  - Gastrointestinal infection [Recovered/Resolved]
  - Pneumonia [Recovered/Resolved]
  - Dyspnoea [Recovering/Resolving]
